FAERS Safety Report 24662227 (Version 7)
Quarter: 2025Q3

REPORT INFORMATION
  Report Type: Report from Study
  Country: US (occurrence: US)
  Receive Date: 20241125
  Receipt Date: 20250801
  Transmission Date: 20251021
  Serious: No
  Sender: SUNOVION
  Company Number: US-SUMITOMO PHARMA SWITZERLAND GMBH-2024SPA005179

PATIENT

DRUGS (37)
  1. ORGOVYX [Suspect]
     Active Substance: RELUGOLIX
     Indication: Prostate cancer
     Dosage: 360 MG, SINGLE
     Route: 048
     Dates: start: 20241106, end: 20241106
  2. ORGOVYX [Suspect]
     Active Substance: RELUGOLIX
     Dosage: 120 MG, QD
     Route: 048
     Dates: start: 20241107
  3. XTANDI [Suspect]
     Active Substance: ENZALUTAMIDE
     Indication: Prostate cancer
     Dosage: 160 MG, QD
     Route: 065
     Dates: start: 20250106
  4. ALFUZOSIN HYDROCHLORIDE [Concomitant]
     Active Substance: ALFUZOSIN HYDROCHLORIDE
     Route: 065
  5. BUSPIRONE HCL [Concomitant]
     Active Substance: BUSPIRONE HYDROCHLORIDE
     Route: 065
  6. CELECOXIB [Concomitant]
     Active Substance: CELECOXIB
     Route: 065
  7. OLMESARTAN [Concomitant]
     Active Substance: OLMESARTAN
     Route: 065
  8. ALPHA LIPOIC ACID [Concomitant]
     Active Substance: .ALPHA.-LIPOIC ACID
     Route: 065
  9. APPLE CIDER VINEGAR [Concomitant]
     Active Substance: APPLE CIDER VINEGAR
     Route: 065
  10. HERBALS\WITHANIA SOMNIFERA ROOT [Concomitant]
     Active Substance: HERBALS\WITHANIA SOMNIFERA ROOT
     Route: 065
  11. CASODEX [Concomitant]
     Active Substance: BICALUTAMIDE
     Route: 065
  12. CLADRIBINE [Concomitant]
     Active Substance: CLADRIBINE
     Route: 065
  13. PRASTERONE [Concomitant]
     Active Substance: PRASTERONE
     Route: 048
  14. Fenugreek blood sugar health [Concomitant]
     Route: 065
  15. Glucosamine chondr [Concomitant]
     Route: 065
  16. LEVOCARNITINE [Concomitant]
     Active Substance: LEVOCARNITINE
     Route: 065
  17. LEVOTHYROXINE SODIUM [Concomitant]
     Active Substance: LEVOTHYROXINE SODIUM
     Route: 065
  18. LUTEIN [Concomitant]
     Active Substance: LUTEIN
     Route: 065
  19. Maca root [Concomitant]
     Route: 065
  20. VITAMINS [Concomitant]
     Active Substance: VITAMINS
     Route: 065
  21. OLMESARTAN MEDOXOMIL [Concomitant]
     Active Substance: OLMESARTAN MEDOXOMIL
     Route: 065
  22. PANTOPRAZOLE SODIUM [Concomitant]
     Active Substance: PANTOPRAZOLE SODIUM
     Route: 065
  23. RA Aspirin EC [Concomitant]
     Route: 065
  24. RA Calcium high potency [Concomitant]
     Route: 065
  25. ROSUVASTATIN CALCIUM [Concomitant]
     Active Substance: ROSUVASTATIN CALCIUM
     Route: 065
  26. SM Coq 10 [Concomitant]
     Route: 065
  27. SM Fish oil [Concomitant]
     Route: 065
  28. SM Iron [Concomitant]
     Route: 065
  29. SM Melatonin [Concomitant]
     Route: 065
  30. SM Saw palmetto [Concomitant]
     Route: 065
  31. DIETARY SUPPLEMENT [Concomitant]
     Active Substance: DIETARY SUPPLEMENT
     Route: 065
  32. Super Amino acid [Concomitant]
     Route: 065
  33. QC Turmeric complex [Concomitant]
     Route: 065
  34. Cla [Concomitant]
     Route: 048
  35. ACETYLCYSTEINE [Concomitant]
     Active Substance: ACETYLCYSTEINE
     Route: 065
  36. Dimethylaminoethanol tartrate [Concomitant]
     Route: 065
  37. EZETIMIBE [Concomitant]
     Active Substance: EZETIMIBE
     Route: 065

REACTIONS (12)
  - Faeces soft [Unknown]
  - Malaise [Unknown]
  - Influenza [Unknown]
  - Body fat disorder [Unknown]
  - Testicular atrophy [Unknown]
  - Alopecia [Unknown]
  - Pollakiuria [Unknown]
  - Dizziness [Not Recovered/Not Resolved]
  - Diarrhoea [Unknown]
  - Weight increased [Unknown]
  - Fatigue [Unknown]
  - Constipation [Unknown]

NARRATIVE: CASE EVENT DATE: 20241217
